FAERS Safety Report 8200685-8 (Version None)
Quarter: 2012Q1

REPORT INFORMATION
  Report Type: 
  Country: None (occurrence: None)
  Receive Date: 20120312
  Receipt Date: 20120306
  Transmission Date: 20120608
  Serious: Yes (Death, Other)
  Sender: FDA-Public Use
  Company Number: JP-ASTELLAS-2011JP003289

PATIENT
  Age: 26 Year
  Sex: Male
  Weight: 53.8 kg

DRUGS (16)
  1. URSO 250 [Concomitant]
     Dosage: 300 MG, UNKNOWN/D
     Route: 048
  2. VANCOMYCIN [Concomitant]
     Dosage: 500 MG, UNKNOWN/D
     Route: 048
  3. VANCOMYCIN [Concomitant]
     Route: 041
  4. PROGRAF [Suspect]
     Dosage: UNK
     Route: 041
  5. METHOTREXATE [Concomitant]
     Route: 042
  6. ARMODAFINIL [Concomitant]
     Dosage: 100 MG, UNKNOWN/D
     Route: 048
  7. ZOVIRAX [Concomitant]
     Dosage: 400 MG, UNKNOWN/D
     Route: 048
  8. DORIPENEM MONOHYDRATE [Concomitant]
     Route: 042
  9. LASIX [Concomitant]
     Route: 042
  10. CIPROFLOXACIN [Concomitant]
     Dosage: 200 MG, UNKNOWN/D
     Route: 048
  11. ANTI-THYMOCYTE GLOBULIN NOS [Concomitant]
     Indication: IMMUNOSUPPRESSANT DRUG THERAPY
     Route: 065
  12. PROGRAF [Suspect]
     Indication: IMMUNOSUPPRESSANT DRUG THERAPY
     Dosage: UNK
     Route: 041
     Dates: start: 20110130, end: 20110202
  13. RABEPRAZOLE SODIUM [Concomitant]
     Dosage: 100 MG, UNKNOWN/D
     Route: 048
  14. SODIUM BICARBONATE [Concomitant]
     Route: 042
  15. OLOPATADINE HCL [Concomitant]
     Route: 048
  16. SEROTONE [Concomitant]
     Route: 042

REACTIONS (1)
  - TOXIC ENCEPHALOPATHY [None]
